FAERS Safety Report 8082439-9 (Version None)
Quarter: 2012Q1

REPORT INFORMATION
  Report Type: 
  Country: None (occurrence: None)
  Receive Date: 20120127
  Receipt Date: 20110218
  Transmission Date: 20120608
  Serious: No
  Sender: FDA-Public Use
  Company Number: US-ABBOTT-11P-163-0706354-00

PATIENT
  Age: 31 Year
  Sex: Female

DRUGS (3)
  1. VITAMIN TAB [Concomitant]
     Indication: PRODUCT USED FOR UNKNOWN INDICATION
     Dosage: DAILY
  2. METHOTREXATE [Concomitant]
     Indication: PRODUCT USED FOR UNKNOWN INDICATION
     Dosage: 0.7 INJECITON WEEKLY
     Route: 050
  3. HUMIRA [Suspect]
     Indication: PSORIATIC ARTHROPATHY

REACTIONS (5)
  - VISUAL IMPAIRMENT [None]
  - HYPOAESTHESIA [None]
  - PARAESTHESIA [None]
  - MIGRAINE [None]
  - NAUSEA [None]
